FAERS Safety Report 22296014 (Version 2)
Quarter: 2023Q2

REPORT INFORMATION
  Report Type: Spontaneous
  Country: FR (occurrence: FR)
  Receive Date: 20230508
  Receipt Date: 20230510
  Transmission Date: 20230722
  Serious: Yes (Other)
  Sender: FDA-Public Use
  Company Number: FR-002147023-NVSC2023FR102596

PATIENT
  Age: 69 Year
  Sex: Male
  Weight: 85.1 kg

DRUGS (9)
  1. MEKINIST [Suspect]
     Active Substance: TRAMETINIB DIMETHYL SULFOXIDE
     Indication: Thyroid neoplasm
     Dosage: 2 MG, QD (FORMULATION: POWDER FOR ORAL SOLUTION)
     Route: 065
     Dates: start: 20230225
  2. MEKINIST [Suspect]
     Active Substance: TRAMETINIB DIMETHYL SULFOXIDE
     Dosage: 1 MG, QD
     Route: 065
     Dates: start: 20230326
  3. MEKINIST [Suspect]
     Active Substance: TRAMETINIB DIMETHYL SULFOXIDE
     Dosage: 2 MG, QD
     Route: 065
  4. TAFINLAR [Suspect]
     Active Substance: DABRAFENIB MESYLATE
     Indication: Thyroid neoplasm
     Dosage: 150 MG X2, QD (DISPERSIBLE TABLET FOR ORAL SUSPENSION
     Route: 065
     Dates: start: 20230225
  5. TAFINLAR [Suspect]
     Active Substance: DABRAFENIB MESYLATE
     Dosage: 75 MGX 2, QD
     Route: 065
     Dates: start: 20230326
  6. TAFINLAR [Suspect]
     Active Substance: DABRAFENIB MESYLATE
     Dosage: 100 MGX 2, QD
     Route: 065
  7. TAFINLAR [Suspect]
     Active Substance: DABRAFENIB MESYLATE
     Dosage: 200 MG, QD
     Route: 065
  8. TAFINLAR [Suspect]
     Active Substance: DABRAFENIB MESYLATE
     Dosage: 300 MG, QD (INTERMEDIATE DOSE)
     Route: 065
  9. TAFINLAR [Suspect]
     Active Substance: DABRAFENIB MESYLATE
     Dosage: 150 MG, QD
     Route: 048

REACTIONS (18)
  - Anaplastic thyroid cancer [Unknown]
  - Malignant neoplasm progression [Unknown]
  - Metastases to liver [Unknown]
  - Hepatic cytolysis [Unknown]
  - Pancytopenia [Unknown]
  - Pneumonia [Unknown]
  - Respiratory distress [Unknown]
  - Flail chest [Unknown]
  - Agitation [Unknown]
  - Hyperthermia [Unknown]
  - Hyperhidrosis [Unknown]
  - Tachycardia [Unknown]
  - Hypertension [Unknown]
  - Constipation [Unknown]
  - Pyrexia [Unknown]
  - Headache [Unknown]
  - Nausea [Unknown]
  - Hypoalbuminaemia [Unknown]

NARRATIVE: CASE EVENT DATE: 20230418
